FAERS Safety Report 21653819 (Version 1)
Quarter: 2022Q4

REPORT INFORMATION
  Report Type: Spontaneous
  Country: DE (occurrence: DE)
  Receive Date: 20221129
  Receipt Date: 20221129
  Transmission Date: 20230112
  Serious: Yes (Hospitalization)
  Sender: FDA-Public Use
  Company Number: None

PATIENT
  Age: 64 Year
  Sex: Female
  Weight: 105 kg

DRUGS (5)
  1. CISPLATIN [Suspect]
     Active Substance: CISPLATIN
     Indication: Product used for unknown indication
  2. APIXABAN [Concomitant]
     Active Substance: APIXABAN
     Dosage: 5 MG, 1-0-1-0
  3. LEVEMIR [Concomitant]
     Active Substance: INSULIN DETEMIR
     Dosage: STRENGTH: 1000 IU 100 IU/ML, 10 IU, 0-0-0-1
  4. METFORMIN [Concomitant]
     Active Substance: METFORMIN HYDROCHLORIDE
     Dosage: 1000 MG, 1-0-1-0
  5. GLIMEPIRIDE [Concomitant]
     Active Substance: GLIMEPIRIDE
     Dosage: 3 MG, 1-0-0-0

REACTIONS (8)
  - Nausea [Unknown]
  - Electrolyte imbalance [Unknown]
  - Vomiting [Unknown]
  - General physical health deterioration [Unknown]
  - Diarrhoea [Unknown]
  - Disorientation [Unknown]
  - Confusional state [Unknown]
  - Dehydration [Unknown]
